FAERS Safety Report 5929824-6 (Version None)
Quarter: 2008Q4

REPORT INFORMATION
  Report Type: 
  Country: None (occurrence: None)
  Receive Date: 20081024
  Receipt Date: 20081002
  Transmission Date: 20090506
  Serious: Yes (Other)
  Sender: FDA-Public Use
  Company Number: AU-SANOFI-SYNTHELABO-A01200812175

PATIENT
  Sex: Female

DRUGS (3)
  1. CRESTOR [Concomitant]
     Indication: BLOOD CHOLESTEROL INCREASED
     Dosage: UNK
     Route: 065
  2. CORDARONE [Suspect]
     Indication: VASCULAR GRAFT
     Dosage: UNK
     Route: 065
     Dates: start: 20080929
  3. PLAVIX [Suspect]
     Indication: VASCULAR GRAFT
     Dosage: UNK
     Route: 048
     Dates: start: 20080929

REACTIONS (4)
  - DIZZINESS [None]
  - JOINT SWELLING [None]
  - PLEURAL EFFUSION [None]
  - VISION BLURRED [None]
